FAERS Safety Report 9805465 (Version 1)
Quarter: 2014Q1

REPORT INFORMATION
  Report Type: Spontaneous
  Country: CA (occurrence: CA)
  Receive Date: 20140109
  Receipt Date: 20140109
  Transmission Date: 20141002
  Serious: Yes (Hospitalization)
  Sender: FDA-Public Use
  Company Number: CA-SA-2014SA001685

PATIENT
  Age: 83 Year
  Sex: Female

DRUGS (34)
  1. ZOPICLONE [Suspect]
     Indication: INSOMNIA
     Route: 065
  2. AMLODIPINE (SALT NOT SPECIFIED) [Suspect]
     Indication: HYPERTENSION
     Dosage: - TOOK HALF A 5 MG TABLET (2.5 MG) TWICE DAILY
     Route: 065
  3. METOPROLOL SALT NOT SPECIFIED [Suspect]
     Indication: CORONARY ARTERY DISEASE
     Dosage: - TOOK HALF A 50 MG TABLET (25 MG) TWICE DAILY
     Route: 065
  4. METOPROLOL SALT NOT SPECIFIED [Suspect]
     Indication: CORONARY ARTERY BYPASS
     Dosage: - TOOK HALF A 50 MG TABLET (25 MG) TWICE DAILY
     Route: 065
  5. RAMIPRIL [Suspect]
     Indication: HYPERTENSION
     Dosage: EVERY MORNING
     Route: 065
  6. FUROSEMIDE [Suspect]
     Indication: PRODUCT USED FOR UNKNOWN INDICATION
     Dosage: EVERY MORNING
     Route: 065
  7. OXAZEPAM [Suspect]
     Indication: ANXIETY
     Dosage: 2, 10 MG TABLETS
     Route: 065
  8. NITROGLYCERINE [Suspect]
     Indication: ANGINA PECTORIS
     Dosage: PATCH
     Route: 062
  9. CLOPIDOGREL [Concomitant]
     Indication: CORONARY ARTERY DISEASE
     Dosage: EVERY MORNING
  10. CLOPIDOGREL [Concomitant]
     Indication: CEREBROVASCULAR ACCIDENT
     Dosage: EVERY MORNING
  11. CLOPIDOGREL [Concomitant]
     Indication: CORONARY ARTERY BYPASS
     Dosage: EVERY MORNING
  12. ATORVASTATIN [Concomitant]
     Indication: CORONARY ARTERY DISEASE
  13. ATORVASTATIN [Concomitant]
     Indication: CEREBROVASCULAR ACCIDENT
  14. ATORVASTATIN [Concomitant]
     Indication: CORONARY ARTERY BYPASS
  15. ATORVASTATIN [Concomitant]
     Indication: CORONARY ARTERY DISEASE
  16. ATORVASTATIN [Concomitant]
     Indication: CEREBROVASCULAR ACCIDENT
  17. ATORVASTATIN [Concomitant]
     Indication: CORONARY ARTERY BYPASS
  18. ESCITALOPRAM OXALATE [Concomitant]
     Indication: DEPRESSION
     Dosage: EVERY MORNING
  19. ESCITALOPRAM OXALATE [Concomitant]
     Indication: ANXIETY
     Dosage: EVERY MORNING
  20. ERGOCALCIFEROL [Concomitant]
     Indication: OSTEOPOROSIS
  21. ERGOCALCIFEROL [Concomitant]
     Indication: OSTEOPOROSIS
  22. HYDROXYCHLOROQUINE SULFATE [Concomitant]
     Indication: RHEUMATOID ARTHRITIS
     Dosage: AT SUPPER
  23. CODEINE/PARACETAMOL [Concomitant]
     Indication: PAIN
     Dosage: 30 MG CODEINE, AS NEEDED, HELD AND STOPPED
  24. ACETAMINOPHEN [Concomitant]
     Indication: PAIN
  25. ACETAMINOPHEN [Concomitant]
     Indication: PAIN
  26. PANTOPRAZOLE [Concomitant]
     Indication: NAUSEA
     Dosage: EVERY MORNING
  27. PANTOPRAZOLE [Concomitant]
     Indication: NAUSEA
  28. NITROGLYCERINE [Concomitant]
     Indication: ANGINA PECTORIS
     Dosage: -SPRAY
  29. POLYETHYLENE GLYCOL [Concomitant]
     Indication: DRY EYE
  30. AMITRIPTYLINE [Concomitant]
     Dates: end: 2011
  31. GABAPENTIN [Concomitant]
     Dates: end: 2011
  32. IRON [Concomitant]
  33. ACETYLSALICYLIC ACID [Concomitant]
  34. VITAMIN C [Concomitant]

REACTIONS (4)
  - Hypotension [Recovering/Resolving]
  - Dizziness [Recovered/Resolved]
  - Orthostatic hypotension [Unknown]
  - Fall [Recovered/Resolved]
